FAERS Safety Report 6460048-2 (Version None)
Quarter: 2009Q4

REPORT INFORMATION
  Report Type: 
  Country: None (occurrence: None)
  Receive Date: 20091129
  Receipt Date: 20091119
  Transmission Date: 20100525
  Serious: Yes (Hospitalization)
  Sender: FDA-Public Use
  Company Number: PHHO2009RU12062

PATIENT
  Sex: Female
  Weight: 56 kg

DRUGS (5)
  1. CERTICAN [Suspect]
     Indication: LIVER TRANSPLANT
     Dosage: 1.5 MG, BID
     Route: 048
     Dates: start: 20090721, end: 20091005
  2. TACROLIMUS COMP-TAC+ [Suspect]
     Indication: LIVER TRANSPLANT
     Dosage: 2 MG, QD
     Route: 048
     Dates: start: 20090610
  3. TACROLIMUS COMP-TAC+ [Suspect]
     Dosage: 5 MG / 24 H
     Route: 048
     Dates: start: 20090828
  4. TACROLIMUS COMP-TAC+ [Suspect]
     Dosage: 7 MG / 24 H
     Route: 048
     Dates: start: 20090930
  5. MEDROL [Concomitant]
     Indication: LIVER TRANSPLANT

REACTIONS (6)
  - ALANINE AMINOTRANSFERASE INCREASED [None]
  - ASPARTATE AMINOTRANSFERASE INCREASED [None]
  - DRUG INEFFECTIVE [None]
  - DRUG TOXICITY [None]
  - THROMBOCYTOPENIA [None]
  - TRANSPLANT REJECTION [None]
